FAERS Safety Report 9337410 (Version 1)
Quarter: 2013Q2

REPORT INFORMATION
  Report Type: Spontaneous
  Country: US (occurrence: US)
  Receive Date: 20130607
  Receipt Date: 20130607
  Transmission Date: 20140414
  Serious: Yes (Hospitalization)
  Sender: FDA-Public Use
  Company Number: US-LUNDBECK-DKLU1087958

PATIENT
  Sex: Female

DRUGS (15)
  1. SABRIL (FOR ORAL SOLUTION) [Suspect]
     Indication: INFANTILE SPASMS
     Route: 048
     Dates: start: 20111020
  2. TOPAMAX [Concomitant]
     Indication: CONVULSION
  3. TOPAMAX [Concomitant]
  4. MELATONIN [Concomitant]
     Indication: SLEEP DISORDER
  5. ACETAMINOPHIN [Concomitant]
     Indication: PYREXIA
  6. ACETAMINOPHIN [Concomitant]
     Indication: PAIN
  7. LEVOTHYROXINE [Concomitant]
     Indication: HYPOTHYROIDISM
     Route: 048
  8. BENADRYL [Concomitant]
     Indication: PRODUCT USED FOR UNKNOWN INDICATION
  9. RACEPINEPHRINE [Concomitant]
     Indication: ASTHMA
     Route: 050
  10. ALBUTEROL [Concomitant]
     Indication: PRODUCT USED FOR UNKNOWN INDICATION
  11. HYDROCORTISONE [Concomitant]
     Indication: PRODUCT USED FOR UNKNOWN INDICATION
  12. LORAZEPAM [Concomitant]
     Indication: PRODUCT USED FOR UNKNOWN INDICATION
  13. METHADONE [Concomitant]
     Indication: PRODUCT USED FOR UNKNOWN INDICATION
  14. LANSOPRAZOLE [Concomitant]
     Indication: PRODUCT USED FOR UNKNOWN INDICATION
     Route: 048
  15. LANSOPRAZOLE [Concomitant]
     Route: 048

REACTIONS (3)
  - Cerebral infarction [Unknown]
  - Hypernatraemia [Recovered/Resolved]
  - Pneumonia [Recovering/Resolving]
